FAERS Safety Report 16533407 (Version 17)
Quarter: 2020Q1

REPORT INFORMATION
  Report Type: Report from Study
  Country: DE (occurrence: DE)
  Receive Date: 20190705
  Receipt Date: 20200304
  Transmission Date: 20200409
  Serious: Yes (Life-Threatening, Hospitalization)
  Sender: FDA-Public Use
  Company Number: DE-AMGEN-DEUCT2019106534

PATIENT
  Age: 65 Year
  Sex: Female
  Weight: 99 kg

DRUGS (19)
  1. ELOTUZUMAB. [Suspect]
     Active Substance: ELOTUZUMAB
     Indication: PLASMA CELL MYELOMA
     Dosage: 10 MILLIGRAM/KILOGRAM, PER CHEMO REGIM
     Route: 042
     Dates: start: 20190613
  2. SULFAMETHOXAZOLE AND TRIMETHOPRIM [Concomitant]
     Active Substance: SULFAMETHOXAZOLE\TRIMETHOPRIM
     Indication: PROPHYLAXIS
     Dosage: 100/160 MILLIGRAM, 3 TIMES/WK
     Route: 048
  3. AMLODIPIN [AMLODIPINE BESILATE] [Concomitant]
     Active Substance: AMLODIPINE BESYLATE
     Indication: HYPERTENSION
     Dosage: 5 MILLIGRAM, BID
     Route: 048
  4. ELOTUZUMAB. [Suspect]
     Active Substance: ELOTUZUMAB
     Dosage: 990 MILLIGRAM, PER CHEMO REGIM
     Route: 042
  5. DEXAMETHASONE. [Suspect]
     Active Substance: DEXAMETHASONE
     Indication: PLASMA CELL MYELOMA
     Dosage: 28 MILLIGRAM, PER CHEMO REGIM
     Route: 048
     Dates: start: 20190613
  6. METAMIZOL NATRIUM [Concomitant]
     Active Substance: METAMIZOLE SODIUM
     Indication: PAIN
     Dosage: 500 MILLIGRAM, AS NECESSARY
     Route: 048
     Dates: start: 20190607
  7. CARFILZOMIB [Suspect]
     Active Substance: CARFILZOMIB
     Dosage: 36 MILLIGRAM/SQ. METER, PER CHEMO REGIM
     Route: 042
  8. ELOTUZUMAB. [Suspect]
     Active Substance: ELOTUZUMAB
     Dosage: UNK UNK, PER CHEMO REGIM
     Route: 042
     Dates: start: 20190906
  9. LENALIDOMIDE [Suspect]
     Active Substance: LENALIDOMIDE
     Indication: PLASMA CELL MYELOMA
     Dosage: 25 MILLIGRAM, PER CHEMO REGIM
     Route: 048
     Dates: start: 20190613
  10. DEXAMETHASONE. [Suspect]
     Active Substance: DEXAMETHASONE
     Dosage: 8 MILLIGRAM, PER CHEMO REGIM
     Route: 042
  11. CARFILZOMIB [Suspect]
     Active Substance: CARFILZOMIB
     Dosage: 30 MILLIGRAM/SQ. METER, PER CHEMO REGIM
     Route: 042
  12. CARFILZOMIB [Suspect]
     Active Substance: CARFILZOMIB
     Dosage: UNK UNK, PER CHEMO REGIM
     Route: 042
     Dates: start: 20190906
  13. METOPROLOL. [Concomitant]
     Active Substance: METOPROLOL
     Indication: HYPERTENSION
     Dosage: 95 MILLIGRAM, BID
     Route: 048
  14. TORASEMID [Concomitant]
     Active Substance: TORSEMIDE
     Indication: HYPERTENSION
     Dosage: 15 MILLIGRAM, QD
     Route: 048
  15. DEXAMETHASONE. [Suspect]
     Active Substance: DEXAMETHASONE
     Dosage: UNK UNK, PER CHEMO REGIM
     Route: 065
     Dates: start: 20190906
  16. CARFILZOMIB [Suspect]
     Active Substance: CARFILZOMIB
     Indication: PLASMA CELL MYELOMA
     Dosage: 20 MILLIGRAM/SQ. METER, PER CHEMO REGIM
     Route: 042
     Dates: start: 20190613
  17. ZOLEDRONATE [Concomitant]
     Active Substance: ZOLEDRONIC ACID
     Indication: OSTEOPOROSIS PROPHYLAXIS
     Dosage: 4 MILLIGRAM
     Route: 042
     Dates: start: 20190606
  18. ACICLOVIR [Concomitant]
     Active Substance: ACYCLOVIR
     Indication: ANTIVIRAL PROPHYLAXIS
     Dosage: 400 MILLIGRAM, BID
     Route: 048
  19. RAMIPRIL. [Concomitant]
     Active Substance: RAMIPRIL
     Indication: HYPERTENSION
     Dosage: 2.5 MILLIGRAM, BID
     Route: 048

REACTIONS (2)
  - Decubitus ulcer [Recovered/Resolved]
  - Pneumonia pseudomonal [Recovered/Resolved]

NARRATIVE: CASE EVENT DATE: 20190701
